FAERS Safety Report 23251501 (Version 2)
Quarter: 2023Q4

REPORT INFORMATION
  Report Type: Report from Study
  Country: CA (occurrence: CA)
  Receive Date: 20231201
  Receipt Date: 20231229
  Transmission Date: 20240110
  Serious: Yes (Other)
  Sender: FDA-Public Use
  Company Number: CA-BAUSCH-BL-2023-017743

PATIENT
  Age: 76 Year
  Sex: Male

DRUGS (2)
  1. SILIQ [Suspect]
     Active Substance: BRODALUMAB
     Indication: Psoriasis
     Dosage: 210/1.5 ML, WEEKLY (WEEK-0 13/NOV/2023, WEEK 1- 20/NOV/2023, WEEK 2- 27/NOV/2023)
     Route: 058
     Dates: start: 20231113, end: 20231127
  2. SILIQ [Suspect]
     Active Substance: BRODALUMAB
     Dosage: 210/1.5 ML, Q2 WEEKS
     Route: 058
     Dates: start: 202312

REACTIONS (8)
  - Suicidal ideation [Unknown]
  - Abdominal discomfort [Unknown]
  - Skin fissures [Unknown]
  - Pain [Unknown]
  - Burning sensation [Unknown]
  - Blood magnesium decreased [Unknown]
  - Abdominal pain upper [Unknown]
  - Diarrhoea [Unknown]

NARRATIVE: CASE EVENT DATE: 20231127
